APPROVED DRUG PRODUCT: METRONIDAZOLE
Active Ingredient: METRONIDAZOLE
Strength: 500MG
Dosage Form/Route: TABLET;ORAL
Application: N018930 | Product #001
Applicant: CHARTWELL MOLECULES LLC
Approved: Aug 18, 1983 | RLD: No | RS: No | Type: DISCN